FAERS Safety Report 8513297-3 (Version None)
Quarter: 2012Q3

REPORT INFORMATION
  Report Type: 
  Country: None (occurrence: None)
  Receive Date: 20120716
  Receipt Date: 20120705
  Transmission Date: 20120928
  Serious: Yes (Death, Other)
  Sender: FDA-Public Use
  Company Number: JP-ROCHE-803169

PATIENT
  Age: 82 Year
  Sex: Female
  Weight: 34 kg

DRUGS (15)
  1. PREDNISOLONE [Suspect]
     Dates: start: 20100831, end: 20101002
  2. ENBREL [Suspect]
     Indication: RHEUMATOID ARTHRITIS
     Route: 058
     Dates: start: 20060101, end: 20100716
  3. ACTEMRA [Suspect]
     Indication: RHEUMATOID ARTHRITIS
     Route: 041
     Dates: start: 20101027, end: 20101027
  4. PREDNISOLONE [Suspect]
  5. HUMIRA [Suspect]
     Indication: RHEUMATOID ARTHRITIS
     Route: 058
     Dates: start: 20100819, end: 20100903
  6. ADALAT CC [Concomitant]
     Route: 048
  7. PREDNISOLONE [Suspect]
     Dates: start: 20100808, end: 20100830
  8. FOLIAMIN [Concomitant]
     Route: 048
     Dates: start: 20070201, end: 20100808
  9. TRICHLORMETHIAZIDE [Concomitant]
     Route: 048
     Dates: start: 20070201
  10. RABEPRAZOLE SODIUM [Concomitant]
     Route: 048
     Dates: start: 20070201
  11. MAGLAX [Concomitant]
     Route: 048
     Dates: start: 20070201
  12. METHOTREXATE [Concomitant]
     Dates: start: 20100710, end: 20100807
  13. PREDNISOLONE [Suspect]
     Indication: PRODUCT USED FOR UNKNOWN INDICATION
     Route: 048
     Dates: start: 20051001, end: 20100707
  14. METHOTREXATE [Concomitant]
     Indication: RHEUMATOID ARTHRITIS
     Route: 048
     Dates: start: 20070101, end: 20100709
  15. SELBEX [Concomitant]
     Route: 048
     Dates: start: 20070201

REACTIONS (10)
  - DILATATION ATRIAL [None]
  - IGA NEPHROPATHY [None]
  - TRICUSPID VALVE INCOMPETENCE [None]
  - PNEUMONIA [None]
  - PLEURAL EFFUSION [None]
  - STAPHYLOCOCCAL SEPSIS [None]
  - CONDITION AGGRAVATED [None]
  - DECUBITUS ULCER [None]
  - MITRAL VALVE INCOMPETENCE [None]
  - ARTHRALGIA [None]
